FAERS Safety Report 15491758 (Version 1)
Quarter: 2018Q4

REPORT INFORMATION
  Report Type: Spontaneous
  Country: GB (occurrence: GB)
  Receive Date: 20181012
  Receipt Date: 20181012
  Transmission Date: 20190205
  Serious: Yes (Disabling)
  Sender: FDA-Public Use
  Company Number: GB-DRREDDYS-GER/UKI/18/0104626

PATIENT
  Age: 60 Year
  Sex: Female
  Weight: 93 kg

DRUGS (6)
  1. MEDREICH CIPROFLOXACIN [Suspect]
     Active Substance: CIPROFLOXACIN
     Indication: ARTHRITIS INFECTIVE
     Route: 048
  2. FAMCICLOVIR. [Concomitant]
     Active Substance: FAMCICLOVIR
     Indication: HERPES OPHTHALMIC
     Route: 048
     Dates: start: 201707
  3. LOSARTAN. [Concomitant]
     Active Substance: LOSARTAN
     Indication: HYPERTENSION
     Route: 048
     Dates: start: 2014
  4. VANCOMYCIN [Concomitant]
     Active Substance: VANCOMYCIN
     Indication: ARTHRITIS INFECTIVE
     Route: 042
     Dates: start: 201802
  5. DR?REDDYS?LABS?UK?CIPROFLOXACIN [Suspect]
     Active Substance: CIPROFLOXACIN
     Indication: ARTHRITIS INFECTIVE
     Route: 048
  6. GENTAMICIN. [Concomitant]
     Active Substance: GENTAMICIN
     Indication: ARTHRITIS INFECTIVE
     Route: 042
     Dates: start: 201802

REACTIONS (5)
  - Musculoskeletal discomfort [Not Recovered/Not Resolved]
  - Photosensitivity reaction [Recovering/Resolving]
  - Abnormal dreams [Recovering/Resolving]
  - Poor quality sleep [Recovering/Resolving]
  - Gastrointestinal disorder [Recovering/Resolving]

NARRATIVE: CASE EVENT DATE: 20180310
